FAERS Safety Report 12613822 (Version 3)
Quarter: 2016Q4

REPORT INFORMATION
  Report Type: Spontaneous
  Country: US (occurrence: US)
  Receive Date: 20160802
  Receipt Date: 20161012
  Transmission Date: 20170207
  Serious: No
  Sender: FDA-Public Use
  Company Number: US-PFIZER INC-2016334976

PATIENT
  Age: 48 Year
  Sex: Female

DRUGS (9)
  1. XELJANZ [Suspect]
     Active Substance: TOFACITINIB CITRATE
     Indication: RHEUMATOID ARTHRITIS
     Dosage: 5 MG, 2X/DAY
     Route: 048
     Dates: start: 20160504, end: 20160701
  2. LANTUS SOLOSTAR [Concomitant]
     Active Substance: INSULIN GLARGINE
  3. OMEPRAZOLE. [Concomitant]
     Active Substance: OMEPRAZOLE
  4. MEDROXYPROGESTERONE [Concomitant]
     Active Substance: MEDROXYPROGESTERONE
  5. GABAPENTIN. [Concomitant]
     Active Substance: GABAPENTIN
  6. LOSARTIN [Concomitant]
     Active Substance: LOSARTAN
  7. XELJANZ [Suspect]
     Active Substance: TOFACITINIB CITRATE
     Dosage: 5 MG, 2X/DAY
     Route: 048
     Dates: start: 201605, end: 201609
  8. HYDROCODONE-APAP [Concomitant]
     Active Substance: ACETAMINOPHEN\HYDROCODONE
  9. HUMALOG KWIKPEN [Concomitant]
     Active Substance: INSULIN LISPRO

REACTIONS (3)
  - Seasonal allergy [Recovered/Resolved]
  - Oropharyngeal pain [Recovered/Resolved]
  - Sputum abnormal [Recovered/Resolved]

NARRATIVE: CASE EVENT DATE: 20160701
